FAERS Safety Report 13219159 (Version 2)
Quarter: 2017Q1

REPORT INFORMATION
  Report Type: Spontaneous
  Country: US (occurrence: US)
  Receive Date: 20170210
  Receipt Date: 20170227
  Transmission Date: 20170428
  Serious: No
  Sender: FDA-Public Use
  Company Number: US-ASTRAZENECA-2017SE12589

PATIENT
  Age: 807 Month
  Sex: Female
  Weight: 95.3 kg

DRUGS (4)
  1. ALBUTEROL. [Concomitant]
     Active Substance: ALBUTEROL
     Indication: ASTHMA
     Dosage: AS REQUIRED
     Route: 055
  2. DILTIAZEM. [Concomitant]
     Active Substance: DILTIAZEM
     Indication: BLOOD PRESSURE ABNORMAL
     Dosage: DAILY
     Route: 048
  3. SYMBICORT [Suspect]
     Active Substance: BUDESONIDE\FORMOTEROL FUMARATE DIHYDRATE
     Indication: ASTHMA
     Dosage: 160/4.5MCG ,2 PUFFS TWICE A DAY, TWO TIMES A DAY
     Route: 055
  4. PREDNISONE. [Concomitant]
     Active Substance: PREDNISONE
     Indication: LUPUS VASCULITIS
     Route: 048
     Dates: start: 2007

REACTIONS (9)
  - Intentional product misuse [Not Recovered/Not Resolved]
  - Product packaging quantity issue [Not Recovered/Not Resolved]
  - Insomnia [Not Recovered/Not Resolved]
  - Drug dose omission [Not Recovered/Not Resolved]
  - Chest pain [Not Recovered/Not Resolved]
  - Cough [Not Recovered/Not Resolved]
  - Oropharyngeal pain [Not Recovered/Not Resolved]
  - Dyspnoea [Not Recovered/Not Resolved]
  - Malaise [Not Recovered/Not Resolved]

NARRATIVE: CASE EVENT DATE: 201701
